FAERS Safety Report 9706263 (Version 2)
Quarter: 2015Q1

REPORT INFORMATION
  Report Type: Spontaneous
  Country: FR (occurrence: FR)
  Receive Date: 20131125
  Receipt Date: 20150320
  Transmission Date: 20150721
  Serious: Yes (Other)
  Sender: FDA-Public Use
  Company Number: FR-AMGEN-FRASP2013081891

PATIENT
  Age: 67 Year
  Sex: Male

DRUGS (17)
  1. SOLUPRED                           /00016201/ [Concomitant]
     Active Substance: PREDNISOLONE
  2. LODOZ [Concomitant]
     Active Substance: BISOPROLOL FUMARATE\HYDROCHLOROTHIAZIDE
  3. GLUCOPHAGE [Concomitant]
     Active Substance: METFORMIN HYDROCHLORIDE
  4. ZOMETA [Suspect]
     Active Substance: ZOLEDRONIC ACID
     Indication: PRODUCT USED FOR UNKNOWN INDICATION
     Route: 042
  5. ZOLADEX [Concomitant]
     Active Substance: GOSERELIN ACETATE
  6. ESIDREX [Concomitant]
     Active Substance: HYDROCHLOROTHIAZIDE
  7. ZOCOR [Concomitant]
     Active Substance: SIMVASTATIN
  8. TRIATEC                            /00116401/ [Concomitant]
     Active Substance: HYDROCHLOROTHIAZIDE
  9. LOPERAMIDE [Concomitant]
     Active Substance: LOPERAMIDE
  10. DOLIPRANE [Concomitant]
     Active Substance: ACETAMINOPHEN
  11. SPIFEN [Concomitant]
     Active Substance: IBUPROFEN
  12. KARDEGIC [Concomitant]
     Active Substance: ASPIRIN LYSINE
  13. BETNEVAL [Concomitant]
     Active Substance: BETAMETHASONE VALERATE
  14. XGEVA [Suspect]
     Active Substance: DENOSUMAB
     Indication: PROPHYLAXIS
     Dosage: UNK
     Route: 065
     Dates: start: 20131004
  15. DAONIL [Concomitant]
     Active Substance: GLYBURIDE
  16. ZYTIGA [Concomitant]
     Active Substance: ABIRATERONE ACETATE
  17. CACIT VITAMINE D3 [Concomitant]
     Active Substance: CALCIUM CARBONATE\CHOLECALCIFEROL

REACTIONS (1)
  - Osteonecrosis of jaw [Not Recovered/Not Resolved]

NARRATIVE: CASE EVENT DATE: 201310
